FAERS Safety Report 18559779 (Version 2)
Quarter: 2020Q4

REPORT INFORMATION
  Report Type: Report from Study
  Country: US (occurrence: US)
  Receive Date: 20201130
  Receipt Date: 20201207
  Transmission Date: 20210114
  Serious: Yes (Hospitalization)
  Sender: FDA-Public Use
  Company Number: US-JAZZ-2020-US-015410

PATIENT
  Sex: Female

DRUGS (59)
  1. BUPROPION HCL [Concomitant]
     Active Substance: BUPROPION HYDROCHLORIDE
  2. PROAIR RESPICLICK [Concomitant]
     Active Substance: ALBUTEROL SULFATE
  3. SINGULAIR [Concomitant]
     Active Substance: MONTELUKAST SODIUM
  4. WARFARIN SODIUM. [Concomitant]
     Active Substance: WARFARIN SODIUM
  5. FLONASE ALLERGY RELIEF [Concomitant]
     Active Substance: FLUTICASONE PROPIONATE
  6. GABAPENTIN. [Concomitant]
     Active Substance: GABAPENTIN
  7. LOMOTIL [LOPERAMIDE HYDROCHLORIDE] [Concomitant]
     Active Substance: LOPERAMIDE HYDROCHLORIDE
  8. MYDAYIS [Concomitant]
     Active Substance: AMPHETAMINE ASPARTATE\AMPHETAMINE SULFATE\DEXTROAMPHETAMINE SACCHARATE\DEXTROAMPHETAMINE SULFATE
  9. MYRBETRIQ [Concomitant]
     Active Substance: MIRABEGRON
  10. OMEPRAZOLE. [Concomitant]
     Active Substance: OMEPRAZOLE
  11. TORSEMIDE. [Concomitant]
     Active Substance: TORSEMIDE
  12. VITAMIN C [Concomitant]
     Active Substance: ASCORBIC ACID
  13. FUROSEMIDE. [Concomitant]
     Active Substance: FUROSEMIDE
  14. CETIRIZINE HCL [Concomitant]
     Active Substance: CETIRIZINE HYDROCHLORIDE
  15. HYDROCORTISONE. [Concomitant]
     Active Substance: HYDROCORTISONE
  16. KETAMINE [Concomitant]
     Active Substance: KETAMINE
  17. OXYCODONE AND ACETAMINOPHEN [Concomitant]
     Active Substance: ACETAMINOPHEN\OXYCODONE HYDROCHLORIDE
  18. REXULTI [Concomitant]
     Active Substance: BREXPIPRAZOLE
  19. SUNOSI [Concomitant]
     Active Substance: SOLRIAMFETOL
  20. WAKIX [Concomitant]
     Active Substance: PITOLISANT HYDROCHLORIDE
  21. XYREM [Suspect]
     Active Substance: SODIUM OXYBATE
     Dosage: DOSE ADJUSTMENT
     Route: 048
     Dates: start: 201706, end: 202004
  22. OXYBUTYNIN. [Concomitant]
     Active Substance: OXYBUTYNIN CHLORIDE
  23. COMBIVENT RESPIMAT [Concomitant]
     Active Substance: ALBUTEROL SULFATE\IPRATROPIUM BROMIDE
  24. ALENDRONATE SODIUM. [Concomitant]
     Active Substance: ALENDRONATE SODIUM
  25. AUSTEDO [Concomitant]
     Active Substance: DEUTETRABENAZINE
  26. FLUVOXAMINE MALEATE. [Concomitant]
     Active Substance: FLUVOXAMINE MALEATE
  27. NUEDEXTA [Concomitant]
     Active Substance: DEXTROMETHORPHAN HYDROBROMIDE\QUINIDINE SULFATE
  28. OXYGEN. [Concomitant]
     Active Substance: OXYGEN
  29. ZOLOFT [Concomitant]
     Active Substance: SERTRALINE HYDROCHLORIDE
  30. AMITRIPTYLINE HCL [Concomitant]
     Active Substance: AMITRIPTYLINE
  31. METOPROLOL TARTRATE. [Concomitant]
     Active Substance: METOPROLOL TARTRATE
  32. FENOFIBRIC ACID. [Concomitant]
     Active Substance: FENOFIBRIC ACID
  33. XANAX [Concomitant]
     Active Substance: ALPRAZOLAM
  34. ATORVASTATIN [Concomitant]
     Active Substance: ATORVASTATIN
  35. IMITREX [Concomitant]
     Active Substance: SUMATRIPTAN SUCCINATE
  36. INCRUSE ELLIPTA [Concomitant]
     Active Substance: UMECLIDINIUM BROMIDE
  37. LITHIUM CARBONATE. [Concomitant]
     Active Substance: LITHIUM CARBONATE
  38. PROZAC [Concomitant]
     Active Substance: FLUOXETINE HYDROCHLORIDE
  39. SYNTHROID [Concomitant]
     Active Substance: LEVOTHYROXINE SODIUM
  40. XYREM [Suspect]
     Active Substance: SODIUM OXYBATE
     Dosage: 4.5 GRAM, BID
     Route: 048
     Dates: start: 202004
  41. CYMBALTA [Concomitant]
     Active Substance: DULOXETINE HYDROCHLORIDE
  42. VITAMIN B COMPLEX [Concomitant]
     Active Substance: CYANOCOBALAMIN\DEXPANTHENOL\NIACINAMIDE\PYRIDOXINE HYDROCHLORIDE\RIBOFLAVIN 5^-PHOSPHATE SODIUM\THIAMINE HYDROCHLORIDE\VITAMIN B COMPLEX
  43. ABILIFY [Concomitant]
     Active Substance: ARIPIPRAZOLE
  44. ADDERALL [Concomitant]
     Active Substance: AMPHETAMINE ASPARTATE\AMPHETAMINE SULFATE\DEXTROAMPHETAMINE SACCHARATE\DEXTROAMPHETAMINE SULFATE
  45. NYSTATIN. [Concomitant]
     Active Substance: NYSTATIN
  46. PITOLISANT [Concomitant]
     Active Substance: PITOLISANT
  47. REMERON [Concomitant]
     Active Substance: MIRTAZAPINE
  48. STOOL SOFTENER (DOCUSATE) [Concomitant]
     Active Substance: DOCUSATE
  49. VITAMIN D2 [Concomitant]
     Active Substance: ERGOCALCIFEROL
  50. VRAYLAR [Concomitant]
     Active Substance: CARIPRAZINE
  51. TRAZODONE [Concomitant]
     Active Substance: TRAZODONE HYDROCHLORIDE
  52. POTASSIUM CHLORIDE. [Concomitant]
     Active Substance: POTASSIUM CHLORIDE
  53. PROAIR HFA [Concomitant]
     Active Substance: ALBUTEROL SULFATE
  54. CALCIUM [Concomitant]
     Active Substance: CALCIUM
  55. LABETALOL HCL [Concomitant]
     Active Substance: LABETALOL HYDROCHLORIDE
  56. VALIUM [Concomitant]
     Active Substance: DIAZEPAM
  57. XYREM [Suspect]
     Active Substance: SODIUM OXYBATE
     Indication: NARCOLEPSY
     Dosage: 2.25 GRAM, BID
     Route: 048
     Dates: start: 201705, end: 201706
  58. WELLBUTRIN [Concomitant]
     Active Substance: BUPROPION HYDROCHLORIDE
  59. ZOFRAN [Concomitant]
     Active Substance: ONDANSETRON HYDROCHLORIDE

REACTIONS (2)
  - Fall [Recovered/Resolved]
  - Infusion [Unknown]
